FAERS Safety Report 8888910 (Version 1)
Quarter: 2012Q4

REPORT INFORMATION
  Report Type: 
  Country: US (occurrence: US)
  Receive Date: 20121106
  Receipt Date: 20121106
  Transmission Date: 20130627
  Serious: No
  Sender: FDA-Public Use
  Company Number: US-009507513-1210USA014255

PATIENT
  Sex: Female

DRUGS (5)
  1. PEG-INTRON [Suspect]
     Indication: HEPATITIS C
     Dosage: UNK
     Dates: start: 20010601, end: 20010901
  2. PEG-INTRON [Suspect]
     Dosage: UNK
     Dates: start: 20120922
  3. RIBAVIRIN [Suspect]
     Dosage: UNK
     Dates: start: 20010601, end: 20010901
  4. RIBAVIRIN [Suspect]
     Dosage: UNK
     Dates: start: 20120922
  5. VICTRELIS [Suspect]
     Indication: HEPATITIS C
     Dosage: UNK
     Dates: start: 20121020

REACTIONS (2)
  - White blood cell count decreased [Unknown]
  - No therapeutic response [Unknown]
